FAERS Safety Report 25611402 (Version 1)
Quarter: 2025Q3

REPORT INFORMATION
  Report Type: Spontaneous
  Country: US (occurrence: None)
  Receive Date: 20250725
  Receipt Date: 20250725
  Transmission Date: 20251020
  Serious: Yes (Death)
  Sender: FDA-CTU
  Company Number: None

PATIENT
  Age: 80 Year
  Sex: Male

DRUGS (1)
  1. REPATHA [Suspect]
     Active Substance: EVOLOCUMAB
     Indication: Lung transplant
     Dosage: OTHER QUANTITY : 140/1 MG/ML ;?FREQUENCY : TWICE A DAY;?
     Route: 048
     Dates: start: 20230420, end: 20250723

REACTIONS (1)
  - Death [None]

NARRATIVE: CASE EVENT DATE: 20250723
